FAERS Safety Report 18396695 (Version 3)
Quarter: 2022Q2

REPORT INFORMATION
  Report Type: Spontaneous
  Country: IT (occurrence: FR)
  Receive Date: 20201019
  Receipt Date: 20220604
  Transmission Date: 20220721
  Serious: Yes (Other)
  Sender: FDA-Public Use
  Company Number: FR-AUROBINDO-AUR-APL-2014-04049

PATIENT
  Age: 30 Year
  Sex: Male

DRUGS (7)
  1. OLANZAPINE [Interacting]
     Active Substance: OLANZAPINE
     Indication: Psychotic disorder
     Dosage: UNK
     Route: 065
  2. CARBAMAZEPINE [Interacting]
     Active Substance: CARBAMAZEPINE
     Indication: Product used for unknown indication
     Dosage: UNK UNK,UNK,
     Route: 065
  3. FOSFOMYCIN [Suspect]
     Active Substance: FOSFOMYCIN
     Indication: Brain abscess
     Dosage: UNK
     Route: 065
  4. PIPERACILLIN [Suspect]
     Active Substance: PIPERACILLIN
     Indication: Brain abscess
     Dosage: UNK
     Route: 065
  5. RIFAMPIN [Suspect]
     Active Substance: RIFAMPIN
     Indication: Brain abscess
     Dosage: UNK UNK,UNK,
     Route: 065
  6. CYAMEMAZINE [Concomitant]
     Active Substance: CYAMEMAZINE
     Indication: Psychotic disorder
     Dosage: UNK
     Route: 065
  7. CEFOTAXIME [Concomitant]
     Active Substance: CEFOTAXIME SODIUM
     Indication: Brain abscess
     Dosage: UNK
     Route: 065

REACTIONS (3)
  - Drug reaction with eosinophilia and systemic symptoms [Recovered/Resolved]
  - Drug interaction [Recovered/Resolved]
  - Cross sensitivity reaction [Unknown]
